FAERS Safety Report 5107779-4 (Version None)
Quarter: 2006Q3

REPORT INFORMATION
  Report Type: 
  Country: None (occurrence: None)
  Receive Date: 20060919
  Receipt Date: 20060906
  Transmission Date: 20061208
  Serious: Yes (Death, Other)
  Sender: FDA-Public Use
  Company Number: DE-AMGEN-UK192604

PATIENT
  Age: 62 Year
  Sex: Female

DRUGS (2)
  1. KINERET [Suspect]
     Indication: RHEUMATOID ARTHRITIS
     Dates: start: 20040201, end: 20040501
  2. METHOTREXATE [Concomitant]
     Dates: start: 20040201, end: 20040501

REACTIONS (6)
  - ANAPHYLACTIC SHOCK [None]
  - ARTHROPOD BITE [None]
  - DEATH [None]
  - EPILEPSY [None]
  - SLEEP APNOEA SYNDROME [None]
  - URINARY TRACT INFECTION [None]
